FAERS Safety Report 13173629 (Version 2)
Quarter: 2018Q1

REPORT INFORMATION
  Report Type: Spontaneous
  Country: US (occurrence: US)
  Receive Date: 20170201
  Receipt Date: 20180126
  Transmission Date: 20180508
  Serious: No
  Sender: FDA-Public Use
  Company Number: US-ABBVIE-16P-163-1566358-00

PATIENT

DRUGS (2)
  1. HUMIRA [Suspect]
     Active Substance: ADALIMUMAB
     Indication: PSORIASIS
     Route: 058
  2. HUMIRA [Suspect]
     Active Substance: ADALIMUMAB
     Indication: PSORIATIC ARTHROPATHY

REACTIONS (23)
  - Skin fissures [Unknown]
  - Musculoskeletal stiffness [Unknown]
  - Emotional distress [Unknown]
  - Immune system disorder [Unknown]
  - Abdominal distension [Unknown]
  - Stress [Unknown]
  - Asthenia [Unknown]
  - Loss of personal independence in daily activities [Unknown]
  - Mobility decreased [Unknown]
  - Sluggishness [Unknown]
  - Inflammation [Unknown]
  - Peripheral swelling [Unknown]
  - Fatigue [Unknown]
  - Pain of skin [Unknown]
  - Arthralgia [Unknown]
  - Skin haemorrhage [Unknown]
  - Anxiety [Unknown]
  - Arthritis [Unknown]
  - Pain in extremity [Unknown]
  - Pain [Unknown]
  - Disturbance in attention [Unknown]
  - Joint swelling [Unknown]
  - Psoriasis [Unknown]
